FAERS Safety Report 6932100-6 (Version None)
Quarter: 2010Q3

REPORT INFORMATION
  Report Type: 
  Country: None (occurrence: None)
  Receive Date: 20100819
  Receipt Date: 20100806
  Transmission Date: 20110219
  Serious: Yes (Hospitalization)
  Sender: FDA-Public Use
  Company Number: A0862711A

PATIENT
  Age: 60 Year
  Sex: Male
  Weight: 109.1 kg

DRUGS (10)
  1. AVANDIA [Suspect]
     Dosage: 8MG PER DAY
     Route: 048
  2. VARDENAFIL HYDROCHLORIDE (LEVITRA) [Concomitant]
  3. SIMVASTATIN [Concomitant]
  4. METFORMIN HCL [Concomitant]
  5. METOPROLOL [Concomitant]
  6. LISINOPRIL [Concomitant]
  7. GEMFIBROZIL [Concomitant]
  8. AMITRIPTYLINE HYDROCHLORIDE [Concomitant]
  9. RANITIDINE [Concomitant]
  10. GLYBURIDE [Concomitant]

REACTIONS (6)
  - BACK PAIN [None]
  - CARDIAC DISORDER [None]
  - CORONARY ARTERY DISEASE [None]
  - COUGH [None]
  - SINUSITIS [None]
  - WEIGHT INCREASED [None]
